FAERS Safety Report 10655908 (Version 1)
Quarter: 2014Q4

REPORT INFORMATION
  Report Type: Spontaneous
  Country: US (occurrence: US)
  Receive Date: 20141216
  Receipt Date: 20141216
  Transmission Date: 20150529
  Serious: Yes (Hospitalization)
  Sender: FDA-Public Use
  Company Number: US-PFIZER INC-2014338454

PATIENT
  Age: 54 Year
  Sex: Female

DRUGS (17)
  1. MYCOPHENOLATE MOFETIL. [Suspect]
     Active Substance: MYCOPHENOLATE MOFETIL
     Dosage: 360 MG, DAILY
     Route: 048
  2. TACROLIMUS. [Interacting]
     Active Substance: TACROLIMUS
     Dosage: 3 MG, EVERY 12 HOURS
     Route: 048
  3. MYCOPHENOLATE MOFETIL. [Suspect]
     Active Substance: MYCOPHENOLATE MOFETIL
     Dosage: 1080 MG, EVERY 12 HOURS
     Route: 048
  4. TACROLIMUS. [Interacting]
     Active Substance: TACROLIMUS
     Dosage: 10 MG, UNK
     Route: 048
  5. TAMOXIFEN [Concomitant]
     Active Substance: TAMOXIFEN
     Dosage: 20 MG, DAILY
     Route: 048
  6. MYCOPHENOLATE MOFETIL. [Suspect]
     Active Substance: MYCOPHENOLATE MOFETIL
     Dosage: 360 MG, EVERY 12 HOURS
     Route: 048
  7. FLUCONAZOLE. [Suspect]
     Active Substance: FLUCONAZOLE
     Indication: ORAL CANDIDIASIS
     Dosage: 200 MG, DAILY
     Route: 048
  8. TACROLIMUS. [Interacting]
     Active Substance: TACROLIMUS
     Dosage: 8 MG, EVERY 12 HOURS
     Route: 048
  9. RANITIDINE [Concomitant]
     Active Substance: RANITIDINE\RANITIDINE HYDROCHLORIDE
     Dosage: 150 MG, DAILY
     Route: 048
  10. SULFAMETHOXAZOLE/TRIMETHOPRIM [Concomitant]
     Dosage: 400 MG-80 MG, DAILY
     Route: 048
  11. TACROLIMUS. [Interacting]
     Active Substance: TACROLIMUS
     Dosage: 2 MG, EVERY 12 HOURS
     Route: 048
  12. NYSTATIN. [Concomitant]
     Active Substance: NYSTATIN
     Indication: PRODUCTIVE COUGH
     Dosage: 100,000 UNITS/ML,  5 ML EVERY 6 HOURS
     Route: 048
  13. DOCUSATE [Concomitant]
     Active Substance: DOCUSATE
     Dosage: 100 MG, 3X/DAY
     Route: 048
  14. FLUCONAZOLE. [Interacting]
     Active Substance: FLUCONAZOLE
     Indication: ORAL CANDIDIASIS
     Dosage: 400 MG, DAILY
     Route: 042
  15. ACETAMINOPHEN-OXYCODONE [Concomitant]
     Dosage: 325 MG-5 MG, EVERY 4-6 HOURS AS NEEDED
     Route: 048
  16. VALGANCICLOVIR HYDROCHLORIDE [Concomitant]
     Active Substance: VALGANCICLOVIR HYDROCHLORIDE
     Dosage: 450 MG, DAILY
     Route: 048
  17. TACROLIMUS. [Interacting]
     Active Substance: TACROLIMUS
     Dosage: 4 MG, EVERY 12 HOURS
     Route: 048

REACTIONS (5)
  - Mouth ulceration [Recovered/Resolved]
  - Mucosal toxicity [Unknown]
  - Drug level increased [Unknown]
  - Drug interaction [Unknown]
  - Leukopenia [Unknown]
